FAERS Safety Report 5067758-2 (Version None)
Quarter: 2006Q3

REPORT INFORMATION
  Report Type: 
  Country: None (occurrence: None)
  Receive Date: 20060731
  Receipt Date: 20060712
  Transmission Date: 20061208
  Serious: Yes (Hospitalization, Other)
  Sender: FDA-Public Use
  Company Number: DSA_28481_2006

PATIENT
  Age: 58 Year
  Sex: Female

DRUGS (12)
  1. VASOTEC [Suspect]
     Indication: HYPERTENSION
     Dosage: 5 MG TID
     Dates: end: 20060501
  2. THYROID TAB [Suspect]
     Indication: HYPOTHYROIDISM
     Dosage: DF
     Dates: start: 19640101
  3. THYROID TAB [Suspect]
     Indication: THYROIDECTOMY
     Dosage: DF
     Dates: start: 19640101
  4. THYROID TAB [Suspect]
     Indication: HYPOTHYROIDISM
     Dosage: 90 MG Q DAY PO
     Route: 048
     Dates: end: 20060301
  5. THYROID TAB [Suspect]
     Indication: THYROIDECTOMY
     Dosage: 90 MG Q DAY PO
     Route: 048
     Dates: end: 20060301
  6. THYROID TAB [Suspect]
     Dosage: 105 MG Q DAY PO
     Route: 048
     Dates: start: 20060301, end: 20060512
  7. ROCALTROL [Concomitant]
  8. ASPIRIN [Concomitant]
  9. TORSEMIDE [Concomitant]
  10. SYNTHROID [Concomitant]
  11. PREDNISONE [Concomitant]
  12. INTRAVENOUS FLUIDS [Concomitant]

REACTIONS (12)
  - BLOOD GLUCOSE INCREASED [None]
  - BLOOD THYROID STIMULATING HORMONE INCREASED [None]
  - DRUG INTERACTION [None]
  - ERYTHEMA [None]
  - HEART RATE INCREASED [None]
  - HYPERTENSION [None]
  - HYPOAESTHESIA [None]
  - MENTAL IMPAIRMENT [None]
  - RASH [None]
  - THYROXINE DECREASED [None]
  - TREMOR [None]
  - VERTIGO [None]
